FAERS Safety Report 7213835-7 (Version None)
Quarter: 2011Q1

REPORT INFORMATION
  Report Type: 
  Country: None (occurrence: None)
  Receive Date: 20110106
  Receipt Date: 20101228
  Transmission Date: 20110831
  Serious: Yes (Other)
  Sender: FDA-Public Use
  Company Number: PHHY2010ES89754

PATIENT
  Age: 60 Year
  Sex: Female

DRUGS (3)
  1. CARDYL [Concomitant]
     Dosage: 20 MG, UNK
  2. BESITRAN [Concomitant]
     Dosage: 25 MG, UNK
  3. FEMARA [Suspect]
     Indication: BREAST CANCER
     Dosage: 2.5 MG, DAILY
     Route: 048
     Dates: start: 20090701

REACTIONS (3)
  - WEIGHT INCREASED [None]
  - HYPERHIDROSIS [None]
  - ASPHYXIA [None]
